FAERS Safety Report 23123820 (Version 2)
Quarter: 2024Q2

REPORT INFORMATION
  Report Type: Report from Study
  Country: DE (occurrence: DE)
  Receive Date: 20231030
  Receipt Date: 20240629
  Transmission Date: 20240715
  Serious: Yes (Hospitalization)
  Sender: FDA-Public Use
  Company Number: DE-ABBVIE-5468330

PATIENT
  Age: 64 Year
  Sex: Male
  Weight: 102 kg

DRUGS (1)
  1. SKYRIZI [Suspect]
     Active Substance: RISANKIZUMAB-RZAA
     Indication: Psoriasis
     Route: 058
     Dates: start: 20200909

REACTIONS (1)
  - Actinic keratosis [Recovered/Resolved]

NARRATIVE: CASE EVENT DATE: 20230124
